FAERS Safety Report 10050218 (Version 1)
Quarter: 2014Q1

REPORT INFORMATION
  Report Type: Spontaneous
  Country: US (occurrence: None)
  Receive Date: 20140331
  Receipt Date: 20140331
  Transmission Date: 20141002
  Serious: Yes (Other)
  Sender: FDA-Public Use
  Company Number: None

PATIENT
  Age: 72 Year
  Sex: Female

DRUGS (1)
  1. AMANTADINE [Suspect]
     Indication: PARKINSON^S DISEASE
     Dosage: 1  TWICE DAILY TAKEN BY MOUTH?CA FOUR YEARS
     Route: 048

REACTIONS (3)
  - Abdominal pain upper [None]
  - Dyspepsia [None]
  - Product quality issue [None]
